FAERS Safety Report 18632947 (Version 2)
Quarter: 2020Q4

REPORT INFORMATION
  Report Type: Spontaneous
  Country: DE (occurrence: DE)
  Receive Date: 20201218
  Receipt Date: 20201224
  Transmission Date: 20210114
  Serious: Yes (Life-Threatening, Hospitalization, Other)
  Sender: FDA-Public Use
  Company Number: DE-JNJFOC-20201219718

PATIENT
  Age: 53 Year
  Sex: Male
  Weight: 70 kg

DRUGS (1)
  1. FENTANYL ^JANSSEN^ [Suspect]
     Active Substance: FENTANYL
     Indication: PRODUCT USED FOR UNKNOWN INDICATION
     Dosage: UNKNOWN DOSAGE, USED AT FIRST, TOOK AT 20 O^CLOCK
     Route: 048
     Dates: start: 20200419

REACTIONS (7)
  - Coma [Recovered/Resolved]
  - Aggression [Recovered/Resolved]
  - Incorrect route of product administration [Unknown]
  - Thermal burn [Unknown]
  - Off label use [Unknown]
  - Disorientation [Recovered/Resolved]
  - Jealous delusion [Unknown]

NARRATIVE: CASE EVENT DATE: 20200419
